FAERS Safety Report 14998505 (Version 1)
Quarter: 2018Q2

REPORT INFORMATION
  Report Type: Spontaneous
  Country: DE (occurrence: DE)
  Receive Date: 20180612
  Receipt Date: 20180612
  Transmission Date: 20180711
  Serious: Yes (Hospitalization)
  Sender: FDA-Public Use
  Company Number: DE-TEVA-2018-DE-904029

PATIENT
  Age: 30 Year
  Sex: Male
  Weight: 73 kg

DRUGS (7)
  1. PREDNISOLONE. [Suspect]
     Active Substance: PREDNISOLONE
     Dosage: 2.5 MILLIGRAM DAILY;
     Route: 048
  2. SANDIMMUN OPTORAL 10 MG [Suspect]
     Active Substance: CYCLOSPORINE
     Dosage: 20 MILLIGRAM DAILY;
     Route: 048
  3. SANDIMMUN OPTORAL 50 MG [Suspect]
     Active Substance: CYCLOSPORINE
     Dosage: 100 MILLIGRAM DAILY;
     Route: 048
  4. RAMIPRIL. [Concomitant]
     Active Substance: RAMIPRIL
     Dosage: 10 MILLIGRAM DAILY;
     Route: 048
  5. SANDIMMUN OPTORAL 25 MG [Suspect]
     Active Substance: CYCLOSPORINE
     Dosage: 50 MILLIGRAM DAILY;
     Route: 048
  6. CELLCEPT [Suspect]
     Active Substance: MYCOPHENOLATE MOFETIL\MYCOPHENOLATE MOFETIL HYDROCHLORIDE
     Dosage: 2000 MILLIGRAM DAILY;
     Route: 048
  7. CEFUROXIM [Concomitant]
     Active Substance: CEFUROXIME
     Dosage: 500 MILLIGRAM DAILY;
     Route: 048

REACTIONS (4)
  - Pyrexia [Unknown]
  - Diarrhoea [Unknown]
  - Infection in an immunocompromised host [Unknown]
  - General physical health deterioration [Unknown]
